FAERS Safety Report 8743518 (Version 8)
Quarter: 2012Q4

REPORT INFORMATION
  Report Type: 
  Country: US (occurrence: US)
  Receive Date: 20120824
  Receipt Date: 20121107
  Transmission Date: 20130627
  Serious: Yes (Death, Hospitalization, Other)
  Sender: FDA-Public Use
  Company Number: US-JNJFOC-20120808955

PATIENT
  Age: 62 Year
  Sex: Male
  Weight: 103.1 kg

DRUGS (49)
  1. DOXORUBICIN [Suspect]
     Indication: MULTIPLE MYELOMA
     Route: 042
     Dates: start: 20111117, end: 20111121
  2. DOXORUBICIN [Suspect]
     Indication: MULTIPLE MYELOMA
     Route: 042
     Dates: start: 20110614, end: 20110617
  3. DOXORUBICIN [Suspect]
     Indication: MULTIPLE MYELOMA
     Route: 042
     Dates: start: 20110807, end: 20110810
  4. DOXORUBICIN [Suspect]
     Indication: MULTIPLE MYELOMA
     Route: 042
     Dates: start: 20111019, end: 20111028
  5. DEXAMETHASONE [Suspect]
     Indication: MULTIPLE MYELOMA
     Route: 048
  6. DEXAMETHASONE [Suspect]
     Indication: MULTIPLE MYELOMA
     Dosage: pulsed
     Route: 048
     Dates: start: 20120424
  7. VELCADE [Suspect]
     Indication: MULTIPLE MYELOMA
     Dosage: 1.3 mg/m2
     Route: 042
     Dates: start: 20110613
  8. VELCADE [Suspect]
     Indication: MULTIPLE MYELOMA
     Route: 042
     Dates: start: 20110621
  9. CYTOXAN [Suspect]
     Indication: MULTIPLE MYELOMA
     Route: 065
  10. CISPLATIN [Suspect]
     Indication: MULTIPLE MYELOMA
     Route: 065
  11. THALIDOMIDE [Suspect]
     Indication: MULTIPLE MYELOMA
     Route: 048
     Dates: start: 20120604
  12. THALIDOMIDE [Suspect]
     Indication: MULTIPLE MYELOMA
     Route: 048
  13. ETOPOSIDE [Suspect]
     Indication: MULTIPLE MYELOMA
     Route: 065
  14. REVLIMID [Suspect]
     Indication: MULTIPLE MYELOMA
     Dosage: for 21 days
     Route: 048
     Dates: start: 20120601
  15. RADIATION THERAPY [Suspect]
     Indication: MULTIPLE MYELOMA
     Route: 065
  16. NEUPOGEN [Suspect]
     Indication: MULTIPLE MYELOMA
     Route: 065
     Dates: end: 20110628
  17. HYDROMORPHONE [Concomitant]
     Indication: PAIN
     Dosage: p.r.n.
     Route: 048
  18. CEFEPIME [Concomitant]
     Dosage: q.a.m,.
     Route: 042
  19. VANTIN [Concomitant]
     Route: 065
  20. VANCOMYCIN [Concomitant]
     Route: 065
  21. MS CONTIN [Concomitant]
     Indication: PRODUCT USED FOR UNKNOWN INDICATION
     Route: 048
  22. CHOLECALCIFEROL [Concomitant]
     Dosage: 1000 units at bedtime
     Route: 048
  23. ZOFRAN [Concomitant]
     Indication: VOMITING
     Dosage: p.r.n.
     Route: 048
  24. ZOFRAN [Concomitant]
     Indication: NAUSEA
     Dosage: p.r.n.
     Route: 048
  25. XYLOXYLIN [Concomitant]
     Indication: PAIN
     Dosage: p.r.n.
     Route: 002
  26. BENDAMUSTINE [Concomitant]
     Route: 065
  27. LENALIDOMIDE [Concomitant]
     Route: 065
  28. METOPROLOL [Concomitant]
     Indication: ATRIAL FIBRILLATION
     Route: 065
  29. METOPROLOL [Concomitant]
     Indication: CORONARY ARTERY DISEASE
     Route: 065
  30. METOPROLOL [Concomitant]
     Indication: HYPERTENSION
     Route: 065
  31. IMODIUM [Concomitant]
     Indication: DIARRHOEA
     Route: 048
  32. DILAUDID [Concomitant]
     Indication: PAIN
     Dosage: quarter 4ht (every 4 hours). p.r.n. (when necessary)
     Route: 065
  33. LASIX [Concomitant]
     Indication: FLUID RETENTION
     Route: 048
  34. SENOKOT [Concomitant]
     Indication: CONSTIPATION
     Dosage: p.r.n.
     Route: 048
  35. RESTORIL [Concomitant]
     Indication: SLEEP DISORDER
     Dosage: bed time, p.r.n.
     Route: 048
  36. CIPROFLOXACIN [Concomitant]
     Route: 048
  37. CLINDAMYCIN [Concomitant]
     Indication: INFECTION PROPHYLAXIS
     Route: 002
  38. FLUCONAZOLE [Concomitant]
     Route: 048
  39. LEVALBUTEROL [Concomitant]
     Indication: DYSPNOEA
     Dosage: p.r.n.
     Route: 045
  40. LYRICA [Concomitant]
     Dosage: 2 tablets
     Route: 048
  41. MEPRON [Concomitant]
     Indication: ANTIFUNGAL PROPHYLAXIS
     Route: 048
  42. PRILOSEC [Concomitant]
     Route: 048
  43. PREVIDENT [Concomitant]
     Route: 048
  44. CRESTOR [Concomitant]
     Indication: PRODUCT USED FOR UNKNOWN INDICATION
     Route: 048
  45. SUCRALFATE [Concomitant]
     Indication: PRODUCT USED FOR UNKNOWN INDICATION
     Route: 048
  46. VALACYCLOVIR [Concomitant]
     Route: 048
  47. VALTREX [Concomitant]
     Route: 065
  48. ATOVAQUONE [Concomitant]
     Route: 065
  49. CIPROFLOXACIN [Concomitant]
     Route: 042

REACTIONS (26)
  - Leukocytosis [Unknown]
  - Hypercalcaemia [Not Recovered/Not Resolved]
  - Anaemia [Unknown]
  - Death [Fatal]
  - Pseudomonas infection [Unknown]
  - Rib fracture [Unknown]
  - Abscess [Recovered/Resolved with Sequelae]
  - Plasmacytosis [Unknown]
  - Depressed level of consciousness [Unknown]
  - Mouth haemorrhage [Unknown]
  - Pleural effusion [Recovered/Resolved with Sequelae]
  - Mucosal inflammation [Recovered/Resolved with Sequelae]
  - Headache [Unknown]
  - Lethargy [Unknown]
  - Disease progression [Fatal]
  - Pneumonia [Recovered/Resolved with Sequelae]
  - Abscess neck [Recovered/Resolved with Sequelae]
  - Wound infection [Unknown]
  - Hepatic encephalopathy [Unknown]
  - Metabolic alkalosis [Unknown]
  - Renal failure acute [Unknown]
  - Respiratory failure [Unknown]
  - Thrombocytopenia [Recovering/Resolving]
  - Melaena [Recovered/Resolved]
  - Hyperglycaemia [Unknown]
  - Epistaxis [Recovered/Resolved]
